FAERS Safety Report 19896210 (Version 1)
Quarter: 2021Q3

REPORT INFORMATION
  Report Type: Report from Study
  Country: TH (occurrence: TH)
  Receive Date: 20210929
  Receipt Date: 20210929
  Transmission Date: 20211014
  Serious: Yes (Death, Hospitalization)
  Sender: FDA-Public Use
  Company Number: TH-ASTRAZENECA-2021A484534

PATIENT
  Age: 1048 Month
  Sex: Female

DRUGS (3)
  1. ANTI?COUGH DRUG [Concomitant]
  2. ANTI?CONSTIPATION DRUG [Concomitant]
  3. TAGRISSO [Suspect]
     Active Substance: OSIMERTINIB
     Indication: LUNG NEOPLASM MALIGNANT
     Route: 048
     Dates: start: 20210518, end: 202106

REACTIONS (3)
  - Dyspnoea [Fatal]
  - Rash pruritic [Fatal]
  - Pneumonia [Fatal]

NARRATIVE: CASE EVENT DATE: 202105
